FAERS Safety Report 5366199-8 (Version None)
Quarter: 2007Q2

REPORT INFORMATION
  Report Type: 
  Country: None (occurrence: None)
  Receive Date: 20070619
  Receipt Date: 20070606
  Transmission Date: 20071010
  Serious: Yes (Hospitalization)
  Sender: FDA-Public Use
  Company Number: 2007AL002256

PATIENT
  Age: 78 Year
  Sex: Female
  Weight: 55.4 kg

DRUGS (18)
  1. DIGOXIN [Suspect]
     Dosage: PO
     Route: 048
  2. SUNITINIB MALATE [Concomitant]
  3. FOSAMAX [Concomitant]
  4. HYDROCHLOROTHIAZIDE [Concomitant]
  5. HYDROCODONE BITARTRATE [Concomitant]
  6. ISOSORBIDE DINITRATE [Concomitant]
  7. LEVOTHYROXINE SODIUM [Concomitant]
  8. LIPITOR [Concomitant]
  9. LISINOPRIL [Concomitant]
  10. LORAZEPAM [Concomitant]
  11. OMEPRAZOLE [Concomitant]
  12. CORTISONE ACETATE [Concomitant]
  13. GLUCOSAMINE [Concomitant]
  14. VITAMIN CAP [Concomitant]
  15. GLYCEROL 2.6% [Concomitant]
  16. OMEGA 3 [Concomitant]
  17. BIOTENE [Concomitant]
  18. OXCAL [Concomitant]

REACTIONS (3)
  - BLOOD SODIUM DECREASED [None]
  - CHOLECYSTITIS [None]
  - CHOLELITHIASIS [None]
